FAERS Safety Report 12834264 (Version 1)
Quarter: 2016Q4

REPORT INFORMATION
  Report Type: Spontaneous
  Country: US (occurrence: US)
  Receive Date: 20161010
  Receipt Date: 20161010
  Transmission Date: 20170207
  Serious: No
  Sender: FDA-Public Use
  Company Number: US-ELI_LILLY_AND_COMPANY-US201609008141

PATIENT
  Age: 57 Year
  Sex: Male

DRUGS (2)
  1. CIALIS [Suspect]
     Active Substance: TADALAFIL
     Indication: ERECTILE DYSFUNCTION
     Dosage: 5 MG, QD
     Route: 065
  2. CIALIS [Suspect]
     Active Substance: TADALAFIL
     Dosage: 5 MG, (WOULD TAKE IT FOR 3 DAYS AND SKIP ONE OR TWO DAYS)
     Route: 065

REACTIONS (7)
  - Pain in extremity [Recovered/Resolved]
  - Erectile dysfunction [Unknown]
  - Depression [Unknown]
  - Inappropriate schedule of drug administration [Unknown]
  - Drug ineffective [Unknown]
  - Arthralgia [Unknown]
  - Gastrooesophageal reflux disease [Recovered/Resolved]
